FAERS Safety Report 4383233-2 (Version None)
Quarter: 2004Q2

REPORT INFORMATION
  Report Type: 
  Country: None (occurrence: None)
  Receive Date: 20040618
  Receipt Date: 20040609
  Transmission Date: 20050107
  Serious: Yes (Death, Hospitalization, Other)
  Sender: FDA-Public Use
  Company Number: 2004038719

PATIENT
  Age: 43 Year
  Sex: Male

DRUGS (19)
  1. DOXYCYCLINE [Suspect]
     Indication: PYREXIA
     Dosage: UNKNOWN (UNK, UNKNOWN) UNKNOWN (SEE IMAGE)
     Route: 065
     Dates: start: 20040210, end: 20040302
  2. AMPHOTERICIN B [Suspect]
     Indication: FUNGAL INFECTION
     Dosage: UNK (UNK, 1 IN 1 D); INTRAVENOUS  ( SEE IMAGE)
     Route: 042
     Dates: start: 20040122, end: 20040227
  3. CIDOFOVIR (CIDOFOVIR) [Suspect]
     Indication: INFECTION
     Dosage: UNKNOWN (UNK, UNKNOWN), UNKNOWN (SEE IMAGE)
     Route: 065
     Dates: start: 20040227
  4. CYCLOPHOSPHAMIDE [Suspect]
     Indication: NON-HODGKIN'S LYMPHOMA
     Dosage: UNKNOWN (UNK, UNKNOWN), UNKNOWN (SEE IMAGE)
     Route: 065
  5. VANCOMYCIN [Suspect]
     Indication: PYREXIA
     Dosage: UNKNOWN (UNK, UNKNOWN), UNKNOWN (SEE IMAGE)
     Route: 065
     Dates: start: 20040112, end: 20040301
  6. FOSCARNET SODIUM [Suspect]
     Indication: CYTOMEGALOVIRUS INFECTION
     Dosage: UNKNOWN (UNK, UNKNOWN), UNKNOWN (SEE IMAGE)
     Route: 065
     Dates: start: 20040206, end: 20040318
  7. CYCLOSPORINE [Concomitant]
  8. GANCICLOVIR [Concomitant]
  9. PENTAMIDINE [Concomitant]
  10. MEROPENEM [Concomitant]
  11. PANTOPRAZOLE SODIUM [Concomitant]
  12. VORICONAZOLE [Concomitant]
  13. PHYTONADIONE [Concomitant]
  14. ACETYLCYSTEINE [Concomitant]
  15. ACETAMINOPHEN [Concomitant]
  16. GRANISETRON [Concomitant]
  17. LENOGRASTIM [Concomitant]
  18. METRONIDAZOLE [Concomitant]
  19. ACYCLOVIR [Concomitant]

REACTIONS (13)
  - CYSTITIS HAEMORRHAGIC [None]
  - DIALYSIS [None]
  - HEPATOTOXICITY [None]
  - INFECTION IN AN IMMUNOCOMPROMISED HOST [None]
  - MALNUTRITION [None]
  - NEPHROPATHY TOXIC [None]
  - PANCREATITIS ACUTE [None]
  - PNEUMONIA [None]
  - PYREXIA [None]
  - RENAL FAILURE ACUTE [None]
  - RESPIRATORY FAILURE [None]
  - SEPSIS [None]
  - VENOOCCLUSIVE DISEASE [None]
